FAERS Safety Report 6967558-X (Version None)
Quarter: 2010Q3

REPORT INFORMATION
  Report Type: 
  Country: None (occurrence: None)
  Receive Date: 20100901
  Receipt Date: 20100819
  Transmission Date: 20110219
  Serious: Yes (Other)
  Sender: FDA-Public Use
  Company Number: TPA2010A03578

PATIENT
  Age: 35 Year
  Sex: Female

DRUGS (2)
  1. ADENURIC (FEBUXOSTAT) [Suspect]
     Indication: GOUT
     Dosage: 80 MG, 1 IN 1 D, PER ORAL
     Route: 048
     Dates: start: 20100427, end: 20100526
  2. ARCOXIA [Suspect]
     Indication: PAIN
     Dosage: 90 MG, 1 IN 1 D
     Dates: start: 20100519, end: 20100526

REACTIONS (1)
  - THROMBOSIS [None]
